FAERS Safety Report 7418506-X (Version None)
Quarter: 2011Q2

REPORT INFORMATION
  Report Type: 
  Country: None (occurrence: None)
  Receive Date: 20110407
  Receipt Date: 20110330
  Transmission Date: 20111010
  Serious: Yes (Hospitalization)
  Sender: FDA-Public Use
  Company Number: WAES 1103USA03959

PATIENT
  Age: 37 Year
  Sex: Female

DRUGS (12)
  1. IXABEPILONE [Suspect]
     Indication: BREAST CANCER
     Dosage: 16 MG/M[2] /WKY IV ; 16 MG/M[2] /WKY IV ; 16 MG/M[2] /WKY IV
     Route: 042
     Dates: start: 20110315, end: 20110315
  2. IXABEPILONE [Suspect]
     Indication: BREAST CANCER
     Dosage: 16 MG/M[2] /WKY IV ; 16 MG/M[2] /WKY IV ; 16 MG/M[2] /WKY IV
     Route: 042
     Dates: start: 20110308, end: 20110308
  3. IXABEPILONE [Suspect]
     Indication: BREAST CANCER
     Dosage: 16 MG/M[2] /WKY IV ; 16 MG/M[2] /WKY IV ; 16 MG/M[2] /WKY IV
     Route: 042
     Dates: start: 20110322, end: 20110322
  4. LEVOXYL [Concomitant]
  5. NORCO [Concomitant]
  6. OXYCODONE [Concomitant]
  7. EFFEXOR [Concomitant]
  8. MS CONTIN [Concomitant]
  9. CAP VORINOSTAT [Suspect]
     Indication: BREAST CANCER
     Dosage: 300 MG/DAILY PO ; 300 MG/DAILY PO
     Route: 048
     Dates: start: 20110321, end: 20110327
  10. CAP VORINOSTAT [Suspect]
     Indication: BREAST CANCER
     Dosage: 300 MG/DAILY PO ; 300 MG/DAILY PO
     Route: 048
     Dates: start: 20110307, end: 20110313
  11. ALPRAZOLAM [Concomitant]
  12. IBUPROFEN [Concomitant]

REACTIONS (2)
  - MALNUTRITION [None]
  - DEHYDRATION [None]
